FAERS Safety Report 13546964 (Version 4)
Quarter: 2018Q1

REPORT INFORMATION
  Report Type: Spontaneous
  Country: CN (occurrence: CN)
  Receive Date: 20170515
  Receipt Date: 20180129
  Transmission Date: 20180508
  Serious: Yes (Hospitalization, Other)
  Sender: FDA-Public Use
  Company Number: CN-OTSUKA-2017_010467

PATIENT
  Age: 49 Year
  Sex: Female

DRUGS (3)
  1. SAMSCA [Suspect]
     Active Substance: TOLVAPTAN
     Indication: FLUID IMBALANCE
     Dosage: 15 MG, QD
     Route: 048
     Dates: start: 20170402, end: 20170403
  2. SPIRONOLACTONE. [Concomitant]
     Active Substance: SPIRONOLACTONE
     Indication: FLUID IMBALANCE
     Dosage: 20 MG, BID
     Route: 048
     Dates: start: 20170402, end: 20170403
  3. FUROSEMIDE. [Concomitant]
     Active Substance: FUROSEMIDE
     Indication: FLUID IMBALANCE
     Dosage: 20 MG, BID
     Route: 048
     Dates: start: 20170402, end: 20170403

REACTIONS (4)
  - Diabetes insipidus [Recovered/Resolved]
  - Off label use [Unknown]
  - Blood sodium increased [Recovered/Resolved]
  - Coma [Recovered/Resolved]

NARRATIVE: CASE EVENT DATE: 20170402
